FAERS Safety Report 24927275 (Version 1)
Quarter: 2025Q1

REPORT INFORMATION
  Report Type: Report from Study
  Country: PK (occurrence: PK)
  Receive Date: 20250205
  Receipt Date: 20250205
  Transmission Date: 20250408
  Serious: Yes (Death)
  Sender: ROCHE
  Company Number: PK-ROCHE-10000200078

PATIENT
  Age: 59 Year
  Sex: Female

DRUGS (3)
  1. AVASTIN [Suspect]
     Active Substance: BEVACIZUMAB
     Indication: Glioblastoma
     Route: 040
     Dates: start: 20241022, end: 20250113
  2. AVASTIN [Suspect]
     Active Substance: BEVACIZUMAB
     Route: 040
  3. AVASTIN [Suspect]
     Active Substance: BEVACIZUMAB
     Route: 040

REACTIONS (1)
  - Disease progression [Fatal]

NARRATIVE: CASE EVENT DATE: 20250122
